FAERS Safety Report 20597356 (Version 1)
Quarter: 2022Q1

REPORT INFORMATION
  Report Type: Spontaneous
  Country: US (occurrence: None)
  Receive Date: 20220315
  Receipt Date: 20220315
  Transmission Date: 20220423
  Serious: Yes (Hospitalization)
  Sender: FDA-Public Use
  Company Number: None

PATIENT
  Sex: Female

DRUGS (3)
  1. TADALAFIL [Suspect]
     Active Substance: TADALAFIL
     Indication: Pulmonary arterial hypertension
     Dosage: TAKE 1 TABLET BY MOUTH TWICE DAILY
     Route: 048
     Dates: start: 20180914
  2. AMBRISENTAN [Concomitant]
     Active Substance: AMBRISENTAN
  3. XIIDRA DRO 5% [Concomitant]

REACTIONS (3)
  - Respiratory disorder [None]
  - Dependence on respirator [None]
  - Therapy interrupted [None]
